FAERS Safety Report 6262111-8 (Version None)
Quarter: 2009Q3

REPORT INFORMATION
  Report Type: 
  Country: None (occurrence: None)
  Receive Date: 20090709
  Receipt Date: 20090629
  Transmission Date: 20100115
  Serious: Yes (Disabling)
  Sender: FDA-Public Use
  Company Number: TR-ASTRAZENECA-2007SE05217

PATIENT
  Age: 53 Year
  Sex: Female

DRUGS (7)
  1. ARIMIDEX [Suspect]
     Indication: BREAST CANCER
     Route: 048
     Dates: start: 20060622, end: 20070915
  2. METOPROLOL TARTRATE [Concomitant]
     Indication: HYPERTENSION
  3. DELIX [Concomitant]
     Indication: HYPERTENSION
  4. LIPITOR [Concomitant]
     Indication: HYPERLIPIDAEMIA
  5. CORASPIN [Concomitant]
     Indication: MYOCARDIAL ISCHAEMIA
  6. MONOKET [Concomitant]
     Indication: MYOCARDIAL ISCHAEMIA
  7. CLOPIDOGREL [Concomitant]

REACTIONS (1)
  - RETINAL ARTERY OCCLUSION [None]
